FAERS Safety Report 7814368-7 (Version None)
Quarter: 2011Q4

REPORT INFORMATION
  Report Type: 
  Country: None (occurrence: None)
  Receive Date: 20111014
  Receipt Date: 20111003
  Transmission Date: 20120403
  Serious: Yes (Other)
  Sender: FDA-Public Use
  Company Number: PHHY2011BR88992

PATIENT
  Sex: Female
  Weight: 85 kg

DRUGS (1)
  1. EXELON [Suspect]
     Indication: MEMORY IMPAIRMENT
     Dosage: ONE DOSE TWICE A DAY
     Route: 048

REACTIONS (2)
  - NO THERAPEUTIC RESPONSE [None]
  - DEMENTIA ALZHEIMER'S TYPE [None]
